FAERS Safety Report 6343006-8 (Version None)
Quarter: 2009Q3

REPORT INFORMATION
  Report Type: 
  Country: None (occurrence: None)
  Receive Date: 20090908
  Receipt Date: 20090903
  Transmission Date: 20100115
  Serious: Yes (Other)
  Sender: FDA-Public Use
  Company Number: SE-BRISTOL-MYERS SQUIBB COMPANY-14338750

PATIENT
  Age: 63 Year
  Sex: Female

DRUGS (5)
  1. APROVEL FILM-COATED TABS 150 MG [Suspect]
     Indication: HYPERTENSION
     Dosage: DRUG DISCONT ONE AFTER TREATMENT START.75MG 05MAR08-18APR08.DOSE INCREASED TO 150 MG ON 18APR09
     Route: 048
     Dates: start: 20080305, end: 20080626
  2. FELODIPINE [Concomitant]
  3. SIMVASTATIN [Concomitant]
  4. HUMULIN N [Concomitant]
  5. LANTUS [Concomitant]
     Dosage: LANTUS SOLUTION FOR INJECTION 100 UNITS/ML 1DF=100 UNITS/ML

REACTIONS (2)
  - RETINAL HAEMORRHAGE [None]
  - VITREOUS HAEMORRHAGE [None]
